FAERS Safety Report 18937713 (Version 1)
Quarter: 2021Q1

REPORT INFORMATION
  Report Type: Spontaneous
  Country: TW (occurrence: TW)
  Receive Date: 20210224
  Receipt Date: 20210224
  Transmission Date: 20210420
  Serious: Yes (Death)
  Sender: FDA-Public Use
  Company Number: TW-ELI_LILLY_AND_COMPANY-TW202101002526

PATIENT
  Age: 70 Year
  Sex: Male

DRUGS (2)
  1. CYRAMZA [Suspect]
     Active Substance: RAMUCIRUMAB
     Indication: GASTRIC CANCER
     Dosage: 400 MG, UNKNOWN
     Route: 042
     Dates: start: 20201221, end: 20210104
  2. DOCETAXEL. [Concomitant]
     Active Substance: DOCETAXEL
     Indication: GASTRIC CANCER
     Dosage: 60 MG/M2, UNKNOWN
     Route: 065
     Dates: start: 20201221, end: 20210104

REACTIONS (4)
  - Peripheral swelling [Unknown]
  - Off label use [Unknown]
  - Death [Fatal]
  - Haemorrhage [Unknown]

NARRATIVE: CASE EVENT DATE: 20201221
